FAERS Safety Report 23451783 (Version 1)
Quarter: 2024Q1

REPORT INFORMATION
  Report Type: Spontaneous
  Country: US (occurrence: US)
  Receive Date: 20240129
  Receipt Date: 20240129
  Transmission Date: 20240410
  Serious: No
  Sender: FDA-Public Use
  Company Number: US-SA-SAC20240123000827

PATIENT
  Sex: Female

DRUGS (1)
  1. AUBAGIO [Suspect]
     Active Substance: TERIFLUNOMIDE
     Dosage: UNK
     Route: 065

REACTIONS (6)
  - Fatigue [Unknown]
  - Central nervous system lesion [Unknown]
  - Pain [Unknown]
  - Vision blurred [Unknown]
  - Depressed mood [Unknown]
  - Nerve compression [Unknown]
